FAERS Safety Report 5210348-9 (Version None)
Quarter: 2007Q1

REPORT INFORMATION
  Report Type: 
  Country: None (occurrence: None)
  Receive Date: 20070117
  Receipt Date: 20070110
  Transmission Date: 20070707
  Serious: Yes (Other)
  Sender: FDA-Public Use
  Company Number: JP-AVENTIS-200710091JP

PATIENT
  Age: 57 Year
  Sex: Male

DRUGS (2)
  1. TAXOTERE [Suspect]
     Route: 041
  2. CARBOPLATIN [Concomitant]
     Dosage: DOSE: 6 AUC

REACTIONS (1)
  - SUTURE RUPTURE [None]
